FAERS Safety Report 11816292 (Version 1)
Quarter: 2015Q4

REPORT INFORMATION
  Report Type: Spontaneous
  Country: US (occurrence: US)
  Receive Date: 20151209
  Receipt Date: 20151209
  Transmission Date: 20160305
  Serious: No
  Sender: FDA-Public Use
  Company Number: US-ASTRAZENECA-2015SF21527

PATIENT
  Sex: Female
  Weight: 117.5 kg

DRUGS (2)
  1. BYETTA [Suspect]
     Active Substance: EXENATIDE
     Indication: TYPE 2 DIABETES MELLITUS
     Route: 058
  2. FARXIGA [Suspect]
     Active Substance: DAPAGLIFLOZIN PROPANEDIOL
     Indication: TYPE 2 DIABETES MELLITUS
     Route: 048
     Dates: start: 20151125

REACTIONS (7)
  - Abdominal discomfort [Unknown]
  - Abdominal pain [Unknown]
  - Renal disorder [Unknown]
  - Flatulence [Unknown]
  - Peripheral swelling [Unknown]
  - Pollakiuria [Unknown]
  - Abdominal distension [Unknown]
